FAERS Safety Report 8850450 (Version 1)
Quarter: 2012Q4

REPORT INFORMATION
  Report Type: 
  Country: US (occurrence: US)
  Receive Date: 20121019
  Receipt Date: 20121019
  Transmission Date: 20130627
  Serious: Yes (Hospitalization)
  Sender: FDA-Public Use
  Company Number: US-PFIZER INC-2012260582

PATIENT
  Sex: Female
  Weight: 52.15 kg

DRUGS (2)
  1. CHANTIX [Suspect]
     Indication: SMOKING CESSATION THERAPY
     Dosage: daily
     Dates: start: 20121003, end: 201210
  2. CHANTIX [Suspect]
     Dosage: UNK, two times a day
     Dates: start: 201210, end: 20121008

REACTIONS (3)
  - Pain in jaw [Not Recovered/Not Resolved]
  - Abdominal discomfort [Not Recovered/Not Resolved]
  - Chest pain [Not Recovered/Not Resolved]
